FAERS Safety Report 7019539-8 (Version None)
Quarter: 2010Q3

REPORT INFORMATION
  Report Type: 
  Country: None (occurrence: None)
  Receive Date: 20100923
  Receipt Date: 20100913
  Transmission Date: 20110219
  Serious: Yes (Other)
  Sender: FDA-Public Use
  Company Number: 20109274

PATIENT
  Sex: Male

DRUGS (4)
  1. LIORESAL [Suspect]
     Indication: MUSCLE SPASTICITY
     Dosage: MCG, DAILY; INTRATHECAL
     Route: 037
  2. MORPHINE [Concomitant]
  3. BUPIVACAINE HCL [Concomitant]
  4. DROPERIDOL [Concomitant]

REACTIONS (11)
  - ABASIA [None]
  - ARTHRITIS [None]
  - DEVICE ALARM ISSUE [None]
  - DEVICE FAILURE [None]
  - DIARRHOEA [None]
  - FATIGUE [None]
  - GAIT DISTURBANCE [None]
  - GASTRIC DISORDER [None]
  - MUSCULAR WEAKNESS [None]
  - TREMOR [None]
  - WITHDRAWAL SYNDROME [None]
